FAERS Safety Report 16858771 (Version 1)
Quarter: 2019Q3

REPORT INFORMATION
  Report Type: Spontaneous
  Country: US (occurrence: US)
  Receive Date: 20190926
  Receipt Date: 20190926
  Transmission Date: 20191005
  Serious: Yes (Other)
  Sender: FDA-Public Use
  Company Number: US-PFIZER INC-2019411024

PATIENT
  Age: 62 Year
  Sex: Male
  Weight: 90.72 kg

DRUGS (1)
  1. VIAGRA [Suspect]
     Active Substance: SILDENAFIL CITRATE
     Dosage: 20 MG, 2X/DAY

REACTIONS (9)
  - Urticaria [Unknown]
  - Feeling hot [Unknown]
  - Apparent death [Unknown]
  - Rash [Unknown]
  - Drug hypersensitivity [Unknown]
  - Parkinson^s disease [Unknown]
  - Palpitations [Unknown]
  - Heart rate increased [Unknown]
  - Altered state of consciousness [Unknown]
